FAERS Safety Report 25548379 (Version 1)
Quarter: 2025Q3

REPORT INFORMATION
  Report Type: Spontaneous
  Country: US (occurrence: None)
  Receive Date: 20250711
  Receipt Date: 20250711
  Transmission Date: 20251020
  Serious: Yes (Other)
  Sender: FDA-CTU
  Company Number: None

PATIENT
  Age: 42 Year
  Sex: Female
  Weight: 68.85 kg

DRUGS (7)
  1. DICLOFENAC [Suspect]
     Active Substance: DICLOFENAC
     Indication: Inflammation
     Dates: start: 20250702, end: 20250703
  2. Omnipod [Concomitant]
  3. novalog insulin [Concomitant]
  4. CGM Dexcom [Concomitant]
  5. Tri-Mag 300 [Concomitant]
  6. Chelated Magnesium Supplement with Glycinate [Concomitant]
  7. Taurinate + Malate [Concomitant]

REACTIONS (5)
  - Muscle spasms [None]
  - Insomnia [None]
  - Sitting disability [None]
  - Myalgia [None]
  - Musculoskeletal discomfort [None]

NARRATIVE: CASE EVENT DATE: 20250702
